FAERS Safety Report 7946875-0 (Version None)
Quarter: 2011Q4

REPORT INFORMATION
  Report Type: 
  Country: None (occurrence: None)
  Receive Date: 20111129
  Receipt Date: 20111121
  Transmission Date: 20120403
  Serious: Yes (Other)
  Sender: FDA-Public Use
  Company Number: PHHY2011PT101016

PATIENT
  Sex: Female
  Weight: 77 kg

DRUGS (1)
  1. ONBREZ [Suspect]
     Indication: BRONCHIAL DISORDER
     Dosage: 150 UG, QD
     Dates: start: 20111003, end: 20111104

REACTIONS (2)
  - CONSTIPATION [None]
  - ABDOMINAL PAIN [None]
